FAERS Safety Report 4902050-5 (Version None)
Quarter: 2006Q1

REPORT INFORMATION
  Report Type: 
  Country: None (occurrence: None)
  Receive Date: 20060202
  Receipt Date: 20060123
  Transmission Date: 20060701
  Serious: Yes (Death)
  Sender: FDA-Public Use
  Company Number: 440002M06USA

PATIENT
  Sex: Male

DRUGS (1)
  1. SEROSTIM [Suspect]
     Indication: CACHEXIA
     Dosage: 5 IN 1 WEEKS

REACTIONS (1)
  - STAPHYLOCOCCAL INFECTION [None]
